FAERS Safety Report 17356799 (Version 1)
Quarter: 2020Q1

REPORT INFORMATION
  Report Type: Spontaneous
  Country: US (occurrence: US)
  Receive Date: 20200131
  Receipt Date: 20200131
  Transmission Date: 20200409
  Serious: Yes (Hospitalization)
  Sender: FDA-Public Use
  Company Number: US-NOVOPROD-707099

PATIENT
  Age: 42 Year
  Sex: Female

DRUGS (3)
  1. ACTIVELLA [Suspect]
     Active Substance: ESTRADIOL\NORETHINDRONE ACETATE
     Indication: UTERINE LEIOMYOMA
     Dosage: 2 TABLETS DAILY ORALLY
     Route: 048
     Dates: start: 20170911, end: 20180227
  2. ELAGOLIX [Suspect]
     Active Substance: ELAGOLIX
     Indication: UTERINE LEIOMYOMA
     Dosage: 300 MG 2 TABS DAILY
     Route: 048
     Dates: start: 20170911, end: 20180227
  3. FERROUS SULFATE. [Concomitant]
     Active Substance: FERROUS SULFATE
     Indication: IRON DEFICIENCY ANAEMIA
     Dosage: 325 MG, QD
     Route: 065
     Dates: start: 20170406

REACTIONS (3)
  - Uterine haemorrhage [Recovered/Resolved]
  - Menorrhagia [Recovered/Resolved]
  - Off label use [Recovered/Resolved]

NARRATIVE: CASE EVENT DATE: 20170911
